FAERS Safety Report 18209603 (Version 2)
Quarter: 2020Q3

REPORT INFORMATION
  Report Type: Report from Study
  Country: None (occurrence: HK)
  Receive Date: 20200828
  Receipt Date: 20200910
  Transmission Date: 20201103
  Serious: Yes (Hospitalization)
  Sender: FDA-Public Use
  Company Number: HK-ABBVIE-20P-075-3533719-00

PATIENT
  Age: 44 Year
  Sex: Female
  Weight: 69 kg

DRUGS (17)
  1. MOMETASONE FUROATE. [Suspect]
     Active Substance: MOMETASONE FUROATE
     Dosage: 1 APPLICATION
     Route: 061
     Dates: start: 20200322
  2. ZOCOR [Concomitant]
     Active Substance: SIMVASTATIN
     Indication: BLOOD CHOLESTEROL INCREASED
     Route: 048
     Dates: start: 20191205
  3. AQUEOUS CREAM [Concomitant]
     Indication: DRY SKIN PROPHYLAXIS
     Route: 061
     Dates: start: 20190612
  4. UREA CREAM [Concomitant]
     Active Substance: UREA
     Indication: DERMATITIS ATOPIC
     Dosage: 3 APPLICATIONS
     Route: 061
     Dates: start: 20200302
  5. HYDROCORTISONE ACETATE. [Suspect]
     Active Substance: HYDROCORTISONE ACETATE
     Indication: DERMATITIS ATOPIC
     Dosage: 2 APPLICATION
     Route: 061
     Dates: start: 20190708, end: 20190717
  6. HYDROCORTISONE ACETATE. [Suspect]
     Active Substance: HYDROCORTISONE ACETATE
     Dosage: 1 APPLICATION
     Route: 061
     Dates: start: 20190718, end: 20200302
  7. TACROLIMUS. [Suspect]
     Active Substance: TACROLIMUS
     Dosage: 1 APPLICATION
     Route: 061
     Dates: start: 20191028, end: 20200818
  8. UPADACITINIB [Suspect]
     Active Substance: UPADACITINIB
     Route: 048
     Dates: start: 20200902
  9. TACROLIMUS. [Suspect]
     Active Substance: TACROLIMUS
     Indication: DERMATITIS ATOPIC
     Dosage: 1 APPLICATION
     Route: 061
     Dates: start: 20190708, end: 20191028
  10. PINETARSOL BATH OIL [Concomitant]
     Indication: DERMATITIS ATOPIC
     Dosage: 1 APPLICATION
     Route: 061
     Dates: start: 20200302
  11. CLOTRIMAZOLE. [Concomitant]
     Active Substance: CLOTRIMAZOLE
     Indication: FUNGAL INFECTION
     Route: 067
     Dates: start: 20200420
  12. UPADACITINIB [Suspect]
     Active Substance: UPADACITINIB
     Indication: DERMATITIS ATOPIC
     Route: 048
     Dates: start: 20190708, end: 20200818
  13. PARAFFIN SOFT;PARAFFIN, LIQUID [Concomitant]
     Indication: DRY SKIN PROPHYLAXIS
     Dosage: (50% + 50%)
     Route: 061
     Dates: start: 20190617
  14. IONIL T SHAMPOO [Concomitant]
     Indication: DERMATITIS ATOPIC
     Dosage: ONCE PER DAY, TWO DAYS PER WEEK
     Route: 061
     Dates: start: 20190302
  15. MOMETASONE FUROATE. [Suspect]
     Active Substance: MOMETASONE FUROATE
     Indication: DERMATITIS ATOPIC
     Dosage: 1 APPLICATION
     Route: 061
     Dates: start: 20190708, end: 20190902
  16. METHYLPREDNISOLONE ACEPONATE [Suspect]
     Active Substance: METHYLPREDNISOLONE ACEPONATE
     Dosage: 1 APPLICATION
     Route: 061
     Dates: start: 20190902
  17. METHYLPREDNISOLONE ACEPONATE [Suspect]
     Active Substance: METHYLPREDNISOLONE ACEPONATE
     Indication: DERMATITIS ATOPIC
     Dosage: 1 APPLICATION
     Route: 061
     Dates: start: 20190718, end: 20190801

REACTIONS (1)
  - Herpes zoster [Not Recovered/Not Resolved]

NARRATIVE: CASE EVENT DATE: 20200818
